FAERS Safety Report 5454940-5 (Version None)
Quarter: 2007Q3

REPORT INFORMATION
  Report Type: 
  Country: None (occurrence: None)
  Receive Date: 20070917
  Receipt Date: 20070906
  Transmission Date: 20080115
  Serious: Yes (Life-Threatening, Hospitalization)
  Sender: FDA-Public Use
  Company Number: FR-PFIZER INC-2007075567

PATIENT
  Sex: Female

DRUGS (3)
  1. CELEBREX [Suspect]
     Route: 048
     Dates: start: 20070620, end: 20070622
  2. LIVIAL [Suspect]
     Route: 048
     Dates: start: 20070620, end: 20070622
  3. ZOLPIDEM TARTRATE [Concomitant]

REACTIONS (2)
  - ACUTE PULMONARY OEDEMA [None]
  - MYOCARDIAL INFARCTION [None]
